FAERS Safety Report 4914203-0 (Version None)
Quarter: 2006Q1

REPORT INFORMATION
  Report Type: 
  Country: None (occurrence: None)
  Receive Date: 20060213
  Receipt Date: 20060125
  Transmission Date: 20060701
  Serious: Yes (Life-Threatening, Other)
  Sender: FDA-Public Use
  Company Number: 200510663BFR

PATIENT
  Age: 5 Month
  Sex: Male
  Weight: 5.5 kg

DRUGS (9)
  1. NIFEDIPINE [Suspect]
     Indication: HYPERTENSION
     Dosage: 10 MG, QID, ORAL
     Route: 048
     Dates: start: 20051001, end: 20051013
  2. TRANDATE [Suspect]
     Dosage: 5 MG, BID,
     Dates: start: 20051004
  3. COMPATH [Concomitant]
  4. CAMCIBAS [Concomitant]
  5. SOLU-MEDROL [Concomitant]
  6. IMUREL [Concomitant]
  7. TACROLIMUS [Concomitant]
  8. CYMEVAN [Concomitant]
  9. TPN [Concomitant]

REACTIONS (4)
  - AGITATION [None]
  - CARDIAC ARREST [None]
  - PYREXIA [None]
  - TACHYCARDIA [None]
